FAERS Safety Report 5405498-8 (Version None)
Quarter: 2007Q3

REPORT INFORMATION
  Report Type: 
  Country: None (occurrence: None)
  Receive Date: 20070803
  Receipt Date: 20070723
  Transmission Date: 20080115
  Serious: Yes (Other)
  Sender: FDA-Public Use
  Company Number: US-PFIZER INC-2007061304

PATIENT
  Sex: Female
  Weight: 67.1 kg

DRUGS (3)
  1. NEURONTIN [Suspect]
     Indication: MULTIPLE SCLEROSIS
  2. ALL OTHER THERAPEUTIC PRODUCTS [Suspect]
     Indication: MULTIPLE SCLEROSIS
  3. MULTIVITAMIN [Concomitant]

REACTIONS (10)
  - ACTIVITIES OF DAILY LIVING IMPAIRED [None]
  - BEDRIDDEN [None]
  - BODY HEIGHT DECREASED [None]
  - EYE DISORDER [None]
  - HEADACHE [None]
  - MULTIPLE SCLEROSIS [None]
  - MUSCULAR WEAKNESS [None]
  - NEUROPATHY [None]
  - STOMACH DISCOMFORT [None]
  - UNRESPONSIVE TO STIMULI [None]
